FAERS Safety Report 15038401 (Version 1)
Quarter: 2018Q2

REPORT INFORMATION
  Report Type: Spontaneous
  Country: AR (occurrence: AR)
  Receive Date: 20180620
  Receipt Date: 20180620
  Transmission Date: 20180711
  Serious: Yes (Other)
  Sender: FDA-Public Use
  Company Number: AR-AMGEN-ARGSP2018083331

PATIENT
  Age: 62 Year
  Sex: Female

DRUGS (1)
  1. ENBREL [Suspect]
     Active Substance: ETANERCEPT
     Indication: RHEUMATOID ARTHRITIS
     Dosage: 1 DF, WEEKLY
     Route: 065
     Dates: start: 20170215

REACTIONS (3)
  - Rheumatoid arthritis [Recovering/Resolving]
  - Limb discomfort [Recovering/Resolving]
  - Drug resistance [Recovering/Resolving]

NARRATIVE: CASE EVENT DATE: 201806
